FAERS Safety Report 7678448-1 (Version None)
Quarter: 2011Q3

REPORT INFORMATION
  Report Type: 
  Country: None (occurrence: None)
  Receive Date: 20110811
  Receipt Date: 20110803
  Transmission Date: 20111222
  Serious: No
  Sender: FDA-Public Use
  Company Number: US-BAYER-2011-069410

PATIENT
  Age: 33 Year
  Sex: Female

DRUGS (2)
  1. MICRONOR [Concomitant]
     Dosage: UNK
     Dates: end: 20110621
  2. BEYAZ [Suspect]
     Dosage: UNK
     Dates: start: 20110621

REACTIONS (1)
  - PREGNANCY ON ORAL CONTRACEPTIVE [None]
